FAERS Safety Report 9630745 (Version 1)
Quarter: 2013Q4

REPORT INFORMATION
  Report Type: Spontaneous
  Country: US (occurrence: None)
  Receive Date: 20131016
  Receipt Date: 20131016
  Transmission Date: 20140711
  Serious: Yes (Hospitalization)
  Sender: FDA-Public Use
  Company Number: None

PATIENT
  Age: 92 Year
  Sex: Female

DRUGS (10)
  1. EYLEA [Suspect]
     Indication: AGE-RELATED MACULAR DEGENERATION
     Dosage: 2.0MG, MONTHLY, 046
     Dates: start: 20120919, end: 20130215
  2. METOPROLOL [Concomitant]
  3. NIFEDIPINE ER [Concomitant]
  4. TYLENOL [Concomitant]
  5. MULTIVITAMIN [Concomitant]
  6. VITAMIN E [Concomitant]
  7. MELOXICAM [Concomitant]
  8. PAROXETINE HCL [Concomitant]
  9. DETROL LA [Concomitant]
  10. I-CAPS [Concomitant]

REACTIONS (5)
  - Dehydration [None]
  - Arthralgia [None]
  - Fall [None]
  - Pelvic fracture [None]
  - Spinal fracture [None]
